FAERS Safety Report 4968586-6 (Version None)
Quarter: 2006Q2

REPORT INFORMATION
  Report Type: 
  Country: None (occurrence: None)
  Receive Date: 20060411
  Receipt Date: 20060331
  Transmission Date: 20061013
  Serious: Yes (Hospitalization)
  Sender: FDA-Public Use
  Company Number: BE-JNJFOC-20060305494

PATIENT
  Sex: Female
  Weight: 62 kg

DRUGS (12)
  1. REMICADE [Suspect]
     Route: 042
  2. REMICADE [Suspect]
     Route: 042
  3. REMICADE [Suspect]
     Route: 042
  4. REMICADE [Suspect]
     Route: 042
  5. REMICADE [Suspect]
     Route: 042
  6. REMICADE [Suspect]
     Route: 042
  7. REMICADE [Suspect]
     Indication: CROHN'S DISEASE
     Route: 042
  8. PAROXETINE HCL [Concomitant]
  9. GRACIAL [Concomitant]
  10. GRACIAL [Concomitant]
  11. DICLOFENAC SODIUM [Concomitant]
  12. METHOTREXATE [Concomitant]

REACTIONS (2)
  - ANOREXIA [None]
  - NAUSEA [None]
